FAERS Safety Report 7339018-8 (Version None)
Quarter: 2011Q1

REPORT INFORMATION
  Report Type: 
  Country: None (occurrence: None)
  Receive Date: 20110308
  Receipt Date: 20110303
  Transmission Date: 20110831
  Serious: Yes (Hospitalization)
  Sender: FDA-Public Use
  Company Number: US-ABBOTT-11P-163-0708898-00

PATIENT
  Sex: Female
  Weight: 86.26 kg

DRUGS (12)
  1. CALCIUM [Concomitant]
     Indication: PRODUCT USED FOR UNKNOWN INDICATION
  2. OXYBUTYNIN [Concomitant]
     Indication: PRODUCT USED FOR UNKNOWN INDICATION
  3. LOVAZA [Concomitant]
     Indication: PRODUCT USED FOR UNKNOWN INDICATION
  4. BENEFIBER [Concomitant]
     Indication: PRODUCT USED FOR UNKNOWN INDICATION
  5. AGGRONOX [Concomitant]
     Indication: PRODUCT USED FOR UNKNOWN INDICATION
     Dosage: 25/200
  6. LEVOTHYROXINE [Concomitant]
     Indication: PRODUCT USED FOR UNKNOWN INDICATION
  7. NEXIUM [Concomitant]
     Indication: PRODUCT USED FOR UNKNOWN INDICATION
  8. RANEXA [Concomitant]
     Indication: HEART RATE DECREASED
  9. SIMCOR [Suspect]
     Indication: BLOOD CHOLESTEROL
     Dosage: DAILY DOSE: 500/20
  10. ZYMAR [Concomitant]
     Indication: EYE DISORDER
  11. BYSTOLIC [Concomitant]
     Indication: PRODUCT USED FOR UNKNOWN INDICATION
  12. TRICOR [Concomitant]
     Indication: PRODUCT USED FOR UNKNOWN INDICATION

REACTIONS (6)
  - CHEST PAIN [None]
  - FLUSHING [None]
  - PRURITUS [None]
  - BACK PAIN [None]
  - HEART RATE DECREASED [None]
  - SKIN BURNING SENSATION [None]
